FAERS Safety Report 5775576-2 (Version None)
Quarter: 2008Q2

REPORT INFORMATION
  Report Type: 
  Country: None (occurrence: None)
  Receive Date: 20080617
  Receipt Date: 20080606
  Transmission Date: 20081010
  Serious: Yes (Hospitalization)
  Sender: FDA-Public Use
  Company Number: DE-PFIZER INC-2008048726

PATIENT
  Sex: Female
  Weight: 64 kg

DRUGS (1)
  1. EXUBERA [Suspect]
     Indication: TYPE 2 DIABETES MELLITUS
     Route: 055

REACTIONS (2)
  - CORONARY ARTERY DISEASE [None]
  - PANIC ATTACK [None]
